FAERS Safety Report 5356628-8 (Version None)
Quarter: 2007Q2

REPORT INFORMATION
  Report Type: 
  Country: None (occurrence: None)
  Receive Date: 20070614
  Receipt Date: 20070611
  Transmission Date: 20071010
  Serious: Yes (Hospitalization)
  Sender: FDA-Public Use
  Company Number: FRWYE826211JUN07

PATIENT
  Age: 37 Year
  Sex: Male
  Weight: 68 kg

DRUGS (9)
  1. ADVIL [Suspect]
     Indication: INFLUENZA
     Route: 048
     Dates: start: 20070223, end: 20070315
  2. ADVIL [Suspect]
     Indication: GENERAL PHYSICAL HEALTH DETERIORATION
  3. CIFLOX [Concomitant]
     Indication: INFLUENZA
     Route: 048
     Dates: start: 20070223, end: 20070228
  4. CIFLOX [Concomitant]
     Indication: GENERAL PHYSICAL HEALTH DETERIORATION
  5. OFLOCET [Concomitant]
     Dosage: UNKNOWN
  6. NEXIUM [Concomitant]
     Dosage: UNKNOWN
     Route: 048
     Dates: start: 20070310
  7. ACETAMINOPHEN [Suspect]
     Indication: INFLUENZA
     Route: 048
     Dates: start: 20070228, end: 20070315
  8. ACETAMINOPHEN [Suspect]
     Indication: GENERAL PHYSICAL HEALTH DETERIORATION
  9. CLAFORAN [Concomitant]
     Dosage: UNKNOWN

REACTIONS (5)
  - CHOLANGITIS [None]
  - HEPATITIS CHOLESTATIC [None]
  - PERITONEAL EFFUSION [None]
  - SPLENOMEGALY [None]
  - WEIGHT DECREASED [None]
